FAERS Safety Report 7861163-9 (Version None)
Quarter: 2011Q4

REPORT INFORMATION
  Report Type: 
  Country: None (occurrence: None)
  Receive Date: 20111027
  Receipt Date: 20111018
  Transmission Date: 20120403
  Serious: Yes (Hospitalization, Other)
  Sender: FDA-Public Use
  Company Number: US-ASTRAZENECA-2010SE56586

PATIENT
  Age: 85 Year
  Sex: Male

DRUGS (2)
  1. NEXIUM [Suspect]
     Route: 048
     Dates: start: 19870101
  2. PRILOSEC [Suspect]
     Route: 048
     Dates: start: 19870101

REACTIONS (7)
  - ABASIA [None]
  - NERVE COMPRESSION [None]
  - APHAGIA [None]
  - COLON CANCER [None]
  - ILL-DEFINED DISORDER [None]
  - MONOPARESIS [None]
  - WEIGHT DECREASED [None]
